FAERS Safety Report 10149451 (Version 4)
Quarter: 2014Q2

REPORT INFORMATION
  Report Type: Spontaneous
  Country: US (occurrence: US)
  Receive Date: 20140502
  Receipt Date: 20140625
  Transmission Date: 20141212
  Serious: Yes (Hospitalization, Other)
  Sender: FDA-Public Use
  Company Number: US-PFIZER INC-2014121238

PATIENT
  Age: 46 Year
  Sex: Male

DRUGS (2)
  1. CHANTIX [Suspect]
     Indication: SMOKING CESSATION THERAPY
     Dosage: 0.5 MG, DAILY
  2. CHANTIX [Suspect]
     Dosage: 1 MG, DAILY

REACTIONS (9)
  - Thrombosis [Unknown]
  - Back disorder [Unknown]
  - Impaired work ability [Unknown]
  - Gait disturbance [Unknown]
  - Deep vein thrombosis [Unknown]
  - Oedema [Unknown]
  - Lymphoedema [Unknown]
  - Pain [Unknown]
  - Asthenia [Unknown]
